FAERS Safety Report 5151513-9 (Version None)
Quarter: 2006Q4

REPORT INFORMATION
  Report Type: 
  Country: None (occurrence: None)
  Receive Date: 20061114
  Receipt Date: 20061114
  Transmission Date: 20070319
  Serious: No
  Sender: FDA-Public Use
  Company Number: None

PATIENT
  Sex: Female

DRUGS (1)
  1. POLYETHYLENE GLYCOL 3350 [Suspect]
     Indication: IRRITABLE BOWEL SYNDROME
     Dosage: 17GM MIXED IN WATER, JUICE + DRINK ONCE OR TWICE DAILY
     Dates: start: 20061015

REACTIONS (3)
  - DYSGEUSIA [None]
  - NAUSEA [None]
  - PHARMACEUTICAL PRODUCT COMPLAINT [None]
